FAERS Safety Report 14397048 (Version 1)
Quarter: 2018Q1

REPORT INFORMATION
  Report Type: Spontaneous
  Country: US (occurrence: US)
  Receive Date: 20180116
  Receipt Date: 20180116
  Transmission Date: 20180509
  Serious: No
  Sender: FDA-Public Use
  Company Number: US-ALLERGAN-1748174US

PATIENT
  Sex: Female

DRUGS (1)
  1. BOTOX COSMETIC [Suspect]
     Active Substance: ONABOTULINUMTOXINA
     Indication: SKIN WRINKLING
     Dosage: UNK, SINGLE
     Route: 030
     Dates: start: 201708, end: 201708

REACTIONS (4)
  - Eye swelling [Recovering/Resolving]
  - Hypersensitivity [Unknown]
  - Fall [Unknown]
  - Swelling face [Recovering/Resolving]

NARRATIVE: CASE EVENT DATE: 201708
